FAERS Safety Report 24407620 (Version 1)
Quarter: 2024Q4

REPORT INFORMATION
  Report Type: Spontaneous
  Country: US (occurrence: None)
  Receive Date: 20241007
  Receipt Date: 20241007
  Transmission Date: 20250115
  Serious: Yes (Other)
  Sender: Public
  Company Number: None

PATIENT
  Age: 82 Year
  Sex: Female
  Weight: 47.3 kg

DRUGS (2)
  1. IMBRUVICA [Suspect]
     Active Substance: IBRUTINIB
     Indication: Lymphoplasmacytoid lymphoma/immunocytoma
     Dosage: FREQUENCY : DAILY;?
     Route: 048
     Dates: start: 20190101, end: 20240617
  2. RITUXIMAB [Suspect]
     Active Substance: RITUXIMAB
     Dates: start: 20190101, end: 20230831

REACTIONS (1)
  - Oesophageal adenocarcinoma [None]

NARRATIVE: CASE EVENT DATE: 20240404
